FAERS Safety Report 20852790 (Version 2)
Quarter: 2022Q2

REPORT INFORMATION
  Report Type: Spontaneous
  Country: US (occurrence: None)
  Receive Date: 20220520
  Receipt Date: 20220629
  Transmission Date: 20220721
  Serious: Yes (Other)
  Sender: FDA-Public Use
  Company Number: US-ROCHE-3095589

PATIENT
  Age: 66 Year
  Sex: Female

DRUGS (18)
  1. AVASTIN [Suspect]
     Active Substance: BEVACIZUMAB
     Indication: Product used for unknown indication
     Route: 065
     Dates: start: 20211015
  2. LONSURF [Suspect]
     Active Substance: TIPIRACIL HYDROCHLORIDE\TRIFLURIDINE
     Indication: Rectal cancer
     Route: 048
     Dates: start: 20210227
  3. NEURONTIN [Concomitant]
     Active Substance: GABAPENTIN
     Indication: Neuropathy peripheral
     Route: 048
  4. ESCITALOPRAM [Concomitant]
     Active Substance: ESCITALOPRAM OXALATE
  5. LOPERAMIDE [Concomitant]
     Active Substance: LOPERAMIDE
  6. POTASSIUM [Concomitant]
     Active Substance: POTASSIUM
  7. WARFARIN [Concomitant]
     Active Substance: WARFARIN
  8. WELLBUTRIN XL [Concomitant]
     Active Substance: BUPROPION HYDROCHLORIDE
  9. VITAMIN D3 [Concomitant]
     Active Substance: CHOLECALCIFEROL
  10. VITAMIN B12 [Concomitant]
     Active Substance: CYANOCOBALAMIN
  11. DECADRON [Concomitant]
     Active Substance: DEXAMETHASONE
  12. LOMOTIL [Concomitant]
     Active Substance: ATROPINE SULFATE\DIPHENOXYLATE HYDROCHLORIDE
  13. LOVENOX [Concomitant]
     Active Substance: ENOXAPARIN SODIUM
  14. LEXAPRO [Concomitant]
     Active Substance: ESCITALOPRAM OXALATE
  15. ATIVAN [Concomitant]
     Active Substance: LORAZEPAM
  16. ZOFRAN [Concomitant]
     Active Substance: ONDANSETRON HYDROCHLORIDE
  17. VITAMINS [Concomitant]
     Active Substance: VITAMINS
  18. COVID-19 VACCINE [Concomitant]

REACTIONS (20)
  - Dehydration [Unknown]
  - White blood cell count decreased [Unknown]
  - Fatigue [Recovering/Resolving]
  - Diarrhoea [Recovering/Resolving]
  - Nausea [Unknown]
  - Neuropathy peripheral [Recovering/Resolving]
  - Dizziness [Recovered/Resolved]
  - Dysphonia [Unknown]
  - Gastrointestinal stoma complication [Unknown]
  - Electrolyte imbalance [Unknown]
  - Weight decreased [Recovering/Resolving]
  - Disease progression [Recovering/Resolving]
  - Insomnia [Unknown]
  - SARS-CoV-2 test positive [Unknown]
  - Decreased appetite [Unknown]
  - Neutropenia [Recovering/Resolving]
  - Abdominal pain [Unknown]
  - Thrombocytopenia [Recovering/Resolving]
  - Anaemia [Unknown]
  - Inappropriate schedule of product administration [Unknown]
